FAERS Safety Report 12476000 (Version 1)
Quarter: 2016Q2

REPORT INFORMATION
  Report Type: Spontaneous
  Country: GB (occurrence: GB)
  Receive Date: 20160617
  Receipt Date: 20160617
  Transmission Date: 20160815
  Serious: Yes (Hospitalization)
  Sender: FDA-Public Use
  Company Number: GB-PFIZER INC-2016293223

PATIENT
  Age: 77 Year

DRUGS (18)
  1. ENOXAPARIN [Concomitant]
     Active Substance: ENOXAPARIN
     Dosage: ACUTE - FOR 5 DAYS
     Dates: start: 20160219
  2. DIGOXIN. [Concomitant]
     Active Substance: DIGOXIN
     Dosage: 62.5 UG, 1X/DAY
  3. GABAPENTIN. [Concomitant]
     Active Substance: GABAPENTIN
     Dosage: ACUTE - FOR 4 DAYS
     Dates: start: 20160219
  4. WARFARIN [Suspect]
     Active Substance: WARFARIN
  5. DALTEPARIN SODIUM [Suspect]
     Active Substance: DALTEPARIN SODIUM
     Dosage: 1 DF, UNK
     Dates: start: 20160213, end: 20160215
  6. DOXAZOSIN [Concomitant]
     Active Substance: DOXAZOSIN\DOXAZOSIN MESYLATE
     Dosage: 2 MG, 1X/DAY
  7. ATENOLOL. [Concomitant]
     Active Substance: ATENOLOL
     Dosage: 25 MG, 1X/DAY
  8. ADCAL D3 [Concomitant]
     Active Substance: CALCIUM CARBONATE\CHOLECALCIFEROL
     Dosage: 1 DF, 2X/DAY
  9. DARBEPOETIN ALFA [Concomitant]
     Active Substance: DARBEPOETIN ALFA
     Dosage: WEDNESDAY
  10. FUROSEMIDE. [Concomitant]
     Active Substance: FUROSEMIDE
     Dosage: EACH MORNING
  11. SIMVASTATIN. [Concomitant]
     Active Substance: SIMVASTATIN
     Dosage: AT NIGHT
  12. PARACETAMOL [Concomitant]
     Active Substance: ACETAMINOPHEN
     Dosage: ACUTE - FOR 5 DAYS.
     Dates: start: 20160219
  13. DULOXETINE. [Concomitant]
     Active Substance: DULOXETINE
     Dosage: 30 MG, 1X/DAY
  14. GLICLAZIDE [Concomitant]
     Active Substance: GLICLAZIDE
     Dosage: REDUCING LEVEL ADJUSTMENTS
  15. OXYCODONE [Concomitant]
     Active Substance: OXYCODONE
     Dosage: 5 MG, 2X/DAY
     Dates: start: 20160219
  16. PERINDOPRIL [Concomitant]
     Active Substance: PERINDOPRIL
     Dosage: 8 MG, 1X/DAY
  17. SENNA /00142201/ [Concomitant]
     Active Substance: SENNA LEAF
     Dosage: ACUTE - FOR 6 DAYS
     Dates: start: 20160219
  18. DOCUSATE [Concomitant]
     Active Substance: DOCUSATE
     Dosage: ACUTE - FOR 7 DAYS
     Dates: start: 20160219

REACTIONS (6)
  - Oesophageal ulcer [Unknown]
  - Oesophagitis [Unknown]
  - Melaena [Unknown]
  - Gastrointestinal haemorrhage [Unknown]
  - Gastric ulcer [Unknown]
  - Haematemesis [Unknown]
